FAERS Safety Report 11144070 (Version 1)
Quarter: 2015Q2

REPORT INFORMATION
  Report Type: Spontaneous
  Country: US (occurrence: US)
  Receive Date: 20150528
  Receipt Date: 20150528
  Transmission Date: 20150821
  Serious: Yes (Other)
  Sender: FDA-Public Use
  Company Number: US-SUN PHARMACEUTICAL INDUSTRIES LTD-2015US-98196

PATIENT
  Age: 36 Year
  Sex: Male

DRUGS (8)
  1. DOXORUBICIN [Suspect]
     Active Substance: DOXORUBICIN
     Indication: PLASMABLASTIC LYMPHOMA
     Dosage: UNK
     Route: 065
  2. PEGFILGRASTIM [Suspect]
     Active Substance: PEGFILGRASTIM
     Indication: PLASMABLASTIC LYMPHOMA
     Dosage: UNK
     Route: 065
  3. ETOPOSIDE. [Suspect]
     Active Substance: ETOPOSIDE
     Indication: PLASMABLASTIC LYMPHOMA
     Dosage: UNK
     Route: 065
  4. BORTEZOMIB [Suspect]
     Active Substance: BORTEZOMIB
     Indication: PLASMABLASTIC LYMPHOMA
     Dosage: UNK
     Route: 058
  5. CYTARABINE. [Suspect]
     Active Substance: CYTARABINE
     Indication: PLASMABLASTIC LYMPHOMA
     Dosage: UNK
     Route: 065
  6. VINCRISTINE [Suspect]
     Active Substance: VINCRISTINE
     Indication: PLASMABLASTIC LYMPHOMA
     Dosage: UNK
     Route: 065
  7. PREDNISONE. [Suspect]
     Active Substance: PREDNISONE
     Indication: PLASMABLASTIC LYMPHOMA
     Dosage: UNK
     Route: 065
  8. CYCLOPHOSPHEMIDE [Suspect]
     Active Substance: CYCLOPHOSPHAMIDE
     Indication: PLASMABLASTIC LYMPHOMA
     Dosage: UNK
     Route: 065

REACTIONS (2)
  - Neuropathy peripheral [Recovered/Resolved]
  - Thrombocytopenia [Recovered/Resolved]
